FAERS Safety Report 25320178 (Version 1)
Quarter: 2025Q2

REPORT INFORMATION
  Report Type: Spontaneous
  Country: US (occurrence: US)
  Receive Date: 20250515
  Receipt Date: 20250515
  Transmission Date: 20250716
  Serious: Yes (Other)
  Sender: SANDOZ
  Company Number: US-SANDOZ-SDZ2025US031671

PATIENT

DRUGS (1)
  1. DOCETAXEL [Suspect]
     Active Substance: DOCETAXEL
     Indication: Product used for unknown indication
     Route: 065

REACTIONS (6)
  - Lacrimation increased [Unknown]
  - Dry eye [Unknown]
  - Corneal abrasion [Unknown]
  - Lacrimal structure injury [Unknown]
  - Dacryostenosis acquired [Unknown]
  - Vision blurred [Unknown]
